FAERS Safety Report 18330652 (Version 1)
Quarter: 2020Q3

REPORT INFORMATION
  Report Type: Spontaneous
  Country: US (occurrence: US)
  Receive Date: 20200930
  Receipt Date: 20200930
  Transmission Date: 20201103
  Serious: Yes (Other)
  Sender: FDA-Public Use
  Company Number: US-PURDUE-USA-2020-0156612

PATIENT
  Sex: Female

DRUGS (10)
  1. HYDROCODONE BITARTRATE AND ACETAMINOPHEN [Suspect]
     Active Substance: ACETAMINOPHEN\HYDROCODONE BITARTRATE
     Indication: PRODUCT USED FOR UNKNOWN INDICATION
     Dosage: UNK
     Route: 048
  2. ZOFRAN [Concomitant]
     Active Substance: ONDANSETRON HYDROCHLORIDE
     Indication: NAUSEA
     Dosage: 3X4 MG, DAILY
     Route: 065
     Dates: start: 201602
  3. OXYCONTIN [Suspect]
     Active Substance: OXYCODONE HYDROCHLORIDE
     Indication: PRODUCT USED FOR UNKNOWN INDICATION
     Dosage: UNK
     Route: 048
  4. OXYCODONE HCL CR TABLETS (SIMILAR TO NDA 22?272) [Suspect]
     Active Substance: OXYCODONE HYDROCHLORIDE
     Indication: PRODUCT USED FOR UNKNOWN INDICATION
     Dosage: UNK
     Route: 048
  5. PROTONIX [Concomitant]
     Active Substance: PANTOPRAZOLE SODIUM
     Indication: NAUSEA
     Dosage: 2X40 MG, TWICE
     Route: 065
     Dates: start: 201602
  6. LORAZEPAM. [Concomitant]
     Active Substance: LORAZEPAM
     Indication: NERVOUSNESS
     Dosage: 3X1 MG, UNK
     Route: 048
     Dates: start: 2006
  7. OXYCODONE/ ACETAMINOPHEN TABLETS [Suspect]
     Active Substance: ACETAMINOPHEN\OXYCODONE HYDROCHLORIDE
     Indication: PRODUCT USED FOR UNKNOWN INDICATION
     Dosage: UNK
     Route: 048
  8. DILAUDID [Suspect]
     Active Substance: HYDROMORPHONE HYDROCHLORIDE
     Indication: PRODUCT USED FOR UNKNOWN INDICATION
     Dosage: UNK
     Route: 048
  9. HYSINGLA ER [Suspect]
     Active Substance: HYDROCODONE BITARTRATE
     Indication: PRODUCT USED FOR UNKNOWN INDICATION
     Dosage: UNK
     Route: 048
  10. PANTOPRAZOLE [Concomitant]
     Active Substance: PANTOPRAZOLE
     Indication: PRODUCT USED FOR UNKNOWN INDICATION
     Dosage: UNK
     Route: 065

REACTIONS (13)
  - Oesophagogastroduodenoscopy [Unknown]
  - Vomiting [Unknown]
  - Colonoscopy [Unknown]
  - Diaphragmatic hernia [Unknown]
  - Large intestinal polypectomy [Unknown]
  - Oesophageal obstruction [Unknown]
  - Nausea [Unknown]
  - Dyspepsia [Unknown]
  - Haemorrhoids [Unknown]
  - Gastritis [Unknown]
  - Drug dependence [Unknown]
  - Biopsy colon [Unknown]
  - Endoscopy upper gastrointestinal tract [Unknown]

NARRATIVE: CASE EVENT DATE: 201811
